FAERS Safety Report 5322874-2 (Version None)
Quarter: 2007Q2

REPORT INFORMATION
  Report Type: 
  Country: None (occurrence: None)
  Receive Date: 20070221
  Receipt Date: 20060718
  Transmission Date: 20071010
  Serious: Yes (Other)
  Sender: FDA-Public Use
  Company Number: PHEH2006US09203

PATIENT
  Age: 53 Year
  Sex: Female

DRUGS (4)
  1. DIOVAN [Suspect]
     Dosage: ORAL
     Route: 048
     Dates: start: 20060629
  2. HYDROXYCHLOROQUINE SULFATE [Suspect]
     Dates: start: 20060629
  3. ALEVE [Suspect]
     Dates: start: 20060629
  4. PREDNISONE TAB [Concomitant]

REACTIONS (1)
  - BLOOD UREA INCREASED [None]
